FAERS Safety Report 8739719 (Version 3)
Quarter: 2012Q4

REPORT INFORMATION
  Report Type: 
  Country: US (occurrence: US)
  Receive Date: 20120823
  Receipt Date: 20121018
  Transmission Date: 20130627
  Serious: No
  Sender: FDA-Public Use
  Company Number: US-009507513-1208USA000515

PATIENT
  Age: 20 Year
  Sex: Female
  Weight: 53.52 kg

DRUGS (1)
  1. IMPLANON [Suspect]
     Indication: CONTRACEPTION
     Dosage: 68 mg, UNK
     Dates: start: 201108

REACTIONS (4)
  - Mood altered [Not Recovered/Not Resolved]
  - Device difficult to use [Unknown]
  - Medical device complication [Unknown]
  - Medical device complication [Unknown]
